FAERS Safety Report 6578621-X (Version None)
Quarter: 2010Q1

REPORT INFORMATION
  Report Type: 
  Country: None (occurrence: None)
  Receive Date: 20100211
  Receipt Date: 20100202
  Transmission Date: 20100710
  Serious: Yes (Hospitalization)
  Sender: FDA-Public Use
  Company Number: DE-BAXTER-2009BH003178

PATIENT
  Age: 80 Year
  Sex: Female
  Weight: 60 kg

DRUGS (11)
  1. METRONIDAZOLE [Suspect]
     Indication: PNEUMONIA
     Route: 042
     Dates: start: 20080826, end: 20080903
  2. ROCEPHIN [Suspect]
     Indication: PNEUMONIA
     Route: 042
     Dates: start: 20080826, end: 20080903
  3. PREDNISOLON [Suspect]
     Indication: COLITIS ULCERATIVE
     Route: 048
     Dates: start: 20080824
  4. PREDNISOLON [Suspect]
     Route: 048
  5. MESALAZINE [Suspect]
     Indication: COLITIS ULCERATIVE
     Route: 048
     Dates: start: 20080824
  6. PANTOPRAZOLE [Suspect]
     Indication: PROPHYLAXIS AGAINST GASTROINTESTINAL ULCER
     Route: 048
     Dates: start: 20080823
  7. METHIZOL [Concomitant]
     Indication: HYPERTHYROIDISM
     Route: 048
     Dates: start: 20080824
  8. REMINYL /UNK/ [Concomitant]
     Indication: DEMENTIA
     Route: 048
     Dates: start: 20070101
  9. NOVONORM [Concomitant]
     Indication: TYPE 2 DIABETES MELLITUS
     Route: 048
     Dates: start: 20070101
  10. RAMIPRIL [Concomitant]
     Indication: HYPERTENSION
     Route: 048
     Dates: start: 19900101
  11. ACETYLSALICYLIC ACID [Concomitant]
     Indication: ISCHAEMIC HEART DISEASE PROPHYLAXIS
     Route: 048
     Dates: start: 19990101

REACTIONS (1)
  - CLOSTRIDIUM DIFFICILE COLITIS [None]
